FAERS Safety Report 17518248 (Version 1)
Quarter: 2020Q1

REPORT INFORMATION
  Report Type: Spontaneous
  Country: GB (occurrence: GB)
  Receive Date: 20200309
  Receipt Date: 20200309
  Transmission Date: 20200409
  Serious: Yes (Other)
  Sender: FDA-Public Use
  Company Number: GB-MYLANLABS-2020M1024065

PATIENT
  Age: 47 Year
  Sex: Male

DRUGS (11)
  1. CHLORPHENAMINE [Concomitant]
     Active Substance: CHLORPHENIRAMINE MALEATE
     Dosage: 10 MILLIGRAM
  2. FOLINIC ACID [Suspect]
     Active Substance: LEUCOVORIN
     Indication: COLON CANCER
     Dosage: 350 MILLIGRAM
     Route: 042
     Dates: start: 20190102
  3. FLUOROURACIL. [Suspect]
     Active Substance: FLUOROURACIL
     Indication: COLON CANCER
     Dosage: 4800MG + 800MG FOR A TOTAL OF 12 CYCLES
     Route: 042
     Dates: start: 20190102
  4. PEGFILGRASTIM [Concomitant]
     Active Substance: PEGFILGRASTIM
     Dosage: 6 MILLIGRAM
  5. ATROPINE. [Concomitant]
     Active Substance: ATROPINE
     Dosage: 0.25 MILLIGRAM
  6. ONDANSETRON [Concomitant]
     Active Substance: ONDANSETRON
     Dosage: 8 MILLIGRAM
  7. IRINOTECAN [Suspect]
     Active Substance: IRINOTECAN
     Indication: COLON CANCER
     Dosage: FOR A TOTAL OF 12 CYCLES
     Route: 042
     Dates: start: 20190102
  8. AVASTIN                            /00848101/ [Suspect]
     Active Substance: SIMVASTATIN
     Indication: COLON CANCER
     Dosage: 580MG (7.5MG/KG) INCREASED FROM 5MG/KG. FOR A TOTAL OF 12 CYCLES
     Route: 042
     Dates: start: 20190102
  9. APREPITANT. [Concomitant]
     Active Substance: APREPITANT
     Dosage: 125 MILLIGRAM
  10. DEXAMETHASONE. [Concomitant]
     Active Substance: DEXAMETHASONE
     Dosage: 8 MILLIGRAM
  11. ZOPICLONE [Concomitant]
     Active Substance: ZOPICLONE
     Dosage: 3.75 MILLIGRAM

REACTIONS (15)
  - Proteinuria [Unknown]
  - Constipation [Unknown]
  - Haematochezia [Unknown]
  - Sleep disorder [Unknown]
  - Dry skin [Unknown]
  - Stomatitis [Unknown]
  - Neuralgia [Not Recovered/Not Resolved]
  - Mouth ulceration [Unknown]
  - Nausea [Not Recovered/Not Resolved]
  - Headache [Unknown]
  - Insomnia [Unknown]
  - Alopecia [Not Recovered/Not Resolved]
  - Diarrhoea [Not Recovered/Not Resolved]
  - Fatigue [Not Recovered/Not Resolved]
  - Haemorrhoids [Unknown]
